FAERS Safety Report 8846935 (Version 1)
Quarter: 2012Q4

REPORT INFORMATION
  Report Type: Spontaneous
  Country: US (occurrence: None)
  Receive Date: 20121017
  Receipt Date: 20121017
  Transmission Date: 20130627
  Serious: Yes (Other)
  Sender: FDA-Public Use
  Company Number: None

PATIENT
  Age: 83 Year
  Sex: Male
  Weight: 71.67 kg

DRUGS (2)
  1. SIMVASTATIN [Suspect]
  2. AMLODIPINE [Suspect]

REACTIONS (5)
  - Drug interaction [None]
  - Myopathy [None]
  - Asthenia [None]
  - Fatigue [None]
  - Pain [None]
